FAERS Safety Report 22530224 (Version 1)
Quarter: 2023Q2

REPORT INFORMATION
  Report Type: Spontaneous
  Country: US (occurrence: US)
  Receive Date: 20230607
  Receipt Date: 20230607
  Transmission Date: 20230721
  Serious: Yes (Life-Threatening, Hospitalization, Other)
  Sender: FDA-Public Use
  Company Number: US-MLMSERVICE-20230526-4308236-1

PATIENT
  Age: 10 Year
  Sex: Male

DRUGS (1)
  1. HEPARIN SODIUM [Suspect]
     Active Substance: HEPARIN SODIUM
     Indication: Anticoagulant therapy
     Dosage: UNK

REACTIONS (4)
  - Haemorrhage intracranial [Recovering/Resolving]
  - Brain oedema [Recovering/Resolving]
  - Subdural haematoma [Recovering/Resolving]
  - Cerebral mass effect [Recovering/Resolving]
